FAERS Safety Report 5108350-0 (Version None)
Quarter: 2006Q3

REPORT INFORMATION
  Report Type: 
  Country: None (occurrence: None)
  Receive Date: 20060731
  Receipt Date: 20060607
  Transmission Date: 20061208
  Serious: No
  Sender: FDA-Public Use
  Company Number: 2006PV015198

PATIENT
  Age: 65 Year
  Sex: Male
  Weight: 68.9467 kg

DRUGS (4)
  1. BYETTA [Suspect]
     Indication: DIABETES MELLITUS NON-INSULIN-DEPENDENT
     Dosage: 5 MCG;BID;SC
     Route: 058
     Dates: start: 20060602
  2. AMARYL [Concomitant]
  3. PRANDIN [Concomitant]
  4. STOOL SOFTENER [Concomitant]

REACTIONS (9)
  - BLOOD GLUCOSE DECREASED [None]
  - BLOOD GLUCOSE INCREASED [None]
  - CONSTIPATION [None]
  - DECREASED APPETITE [None]
  - DYSPEPSIA [None]
  - FEELING JITTERY [None]
  - NAUSEA [None]
  - TREMOR [None]
  - WEIGHT DECREASED [None]
